FAERS Safety Report 26215027 (Version 1)
Quarter: 2025Q4

REPORT INFORMATION
  Report Type: Spontaneous
  Country: CN (occurrence: CN)
  Receive Date: 20251230
  Receipt Date: 20251230
  Transmission Date: 20260117
  Serious: Yes (Hospitalization)
  Sender: ALEXION PHARMACEUTICALS
  Company Number: CN-ASTRAZENECA-202512CHN024495CN

PATIENT
  Age: 49 Year
  Sex: Male
  Weight: 67.5 kg

DRUGS (3)
  1. IMFINZI [Suspect]
     Active Substance: DURVALUMAB
     Indication: Hepatic cancer
     Dosage: 1500 MILLIGRAM, 1 TIMES 28 DAYS
     Dates: start: 20250409, end: 20250416
  2. SINTILIMAB [Suspect]
     Active Substance: SINTILIMAB
     Indication: Hepatic cancer
     Dosage: 200 MILLIGRAM, 1 EVERY 21 DAYS
     Dates: start: 20240101, end: 20250409
  3. REGORAFENIB [Suspect]
     Active Substance: REGORAFENIB
     Indication: Hepatic cancer
     Dosage: 1600 MILLIGRAM, QD
     Route: 061
     Dates: start: 20240101, end: 20250416

REACTIONS (1)
  - Drug eruption [Recovering/Resolving]

NARRATIVE: CASE EVENT DATE: 20250411
